FAERS Safety Report 6376761-1 (Version None)
Quarter: 2009Q3

REPORT INFORMATION
  Report Type: 
  Country: None (occurrence: None)
  Receive Date: 20090924
  Receipt Date: 20090924
  Transmission Date: 20100115
  Serious: Yes (Life-Threatening)
  Sender: FDA-Public Use
  Company Number: None

PATIENT
  Age: 78 Year
  Sex: Female
  Weight: 58.9676 kg

DRUGS (1)
  1. PREDNISONE [Suspect]
     Indication: ARTHROPOD STING
     Dosage: 2 A DAY MOUTH
     Route: 048
     Dates: start: 20090830

REACTIONS (2)
  - HEADACHE [None]
  - SOMNOLENCE [None]
